FAERS Safety Report 17533733 (Version 1)
Quarter: 2020Q1

REPORT INFORMATION
  Report Type: Spontaneous
  Country: CA (occurrence: CA)
  Receive Date: 20200312
  Receipt Date: 20200312
  Transmission Date: 20200409
  Serious: No
  Sender: FDA-Public Use
  Company Number: None

PATIENT
  Age: 45 Year
  Sex: Female
  Weight: 69.75 kg

DRUGS (5)
  1. BRIVLERA 50MG [Suspect]
     Active Substance: BRIVARACETAM
     Indication: FOCAL DYSCOGNITIVE SEIZURES
     Dosage: ?          QUANTITY:1 TABLET(S);?
     Route: 048
     Dates: start: 20200115
  2. MULTIVITAMIN [Concomitant]
     Active Substance: VITAMINS
  3. ATIVAN [Concomitant]
     Active Substance: LORAZEPAM
  4. VITAMIN B12 [Concomitant]
     Active Substance: CYANOCOBALAMIN
  5. CALCIUM MAGNECIUM LIQUID [Concomitant]

REACTIONS (13)
  - Dizziness [None]
  - Oropharyngeal pain [None]
  - Balance disorder [None]
  - Tinnitus [None]
  - Chest discomfort [None]
  - Poverty of speech [None]
  - Headache [None]
  - Fatigue [None]
  - Memory impairment [None]
  - Nausea [None]
  - Chills [None]
  - Disturbance in attention [None]
  - Muscular weakness [None]

NARRATIVE: CASE EVENT DATE: 20200306
